FAERS Safety Report 8760618 (Version 2)
Quarter: 2012Q4

REPORT INFORMATION
  Report Type: Spontaneous
  Country: None (occurrence: None)
  Receive Date: 20120820
  Receipt Date: 20120822
  Transmission Date: 20130627
  Serious: Yes (Death)
  Sender: FDA-Public Use
  Company Number: 2012080069

PATIENT
  Sex: Male

DRUGS (1)
  1. SUBLINOX (ZOLPIDEM) [Suspect]

REACTIONS (2)
  - Completed suicide [None]
  - Asphyxia [None]
